FAERS Safety Report 19895972 (Version 1)
Quarter: 2021Q3

REPORT INFORMATION
  Report Type: Spontaneous
  Country: TW (occurrence: TW)
  Receive Date: 20210929
  Receipt Date: 20210929
  Transmission Date: 20211014
  Serious: Yes (Other)
  Sender: FDA-Public Use
  Company Number: TW-MYLANLABS-2021M1067773

PATIENT
  Age: 73 Year
  Sex: Female

DRUGS (3)
  1. TRASTUZUMAB. [Suspect]
     Active Substance: TRASTUZUMAB
     Indication: HER2 POSITIVE BREAST CANCER
     Dosage: 2 MILLIGRAM/KILOGRAM, CYCLE, 12 CYCLES
     Route: 065
     Dates: start: 2018
  2. PACLITAXEL. [Concomitant]
     Active Substance: PACLITAXEL
     Indication: HER2 POSITIVE BREAST CANCER
     Dosage: 80 MILLIGRAM/SQ. METER, CYCLE, 12 CYCLES
     Route: 065
     Dates: start: 2018
  3. TRASTUZUMAB. [Suspect]
     Active Substance: TRASTUZUMAB
     Dosage: 6 MILLIGRAM/KILOGRAM, CYCLE, 14 CYCLES
     Route: 065
     Dates: start: 2018

REACTIONS (5)
  - Tricuspid valve incompetence [Unknown]
  - Pleural effusion [Unknown]
  - Pulmonary embolism [Unknown]
  - Electrocardiogram ST-T segment abnormal [Unknown]
  - QRS axis abnormal [Unknown]

NARRATIVE: CASE EVENT DATE: 2018
